FAERS Safety Report 11945363 (Version 1)
Quarter: 2016Q1

REPORT INFORMATION
  Report Type: Spontaneous
  Country: IT (occurrence: IT)
  Receive Date: 20160125
  Receipt Date: 20160125
  Transmission Date: 20160526
  Serious: Yes (Hospitalization, Other)
  Sender: FDA-Public Use
  Company Number: IT-ELI_LILLY_AND_COMPANY-IT201601008452

PATIENT
  Age: 46 Year
  Sex: Female

DRUGS (4)
  1. FLUOXETINE HYDROCHLORIDE. [Suspect]
     Active Substance: FLUOXETINE HYDROCHLORIDE
     Indication: WEIGHT DECREASED
     Dosage: UNK, UNKNOWN
     Route: 065
  2. SERTRALINE [Suspect]
     Active Substance: SERTRALINE HYDROCHLORIDE
     Indication: WEIGHT DECREASED
     Dosage: UNK, UNKNOWN
     Route: 065
  3. BUSPIRONE [Suspect]
     Active Substance: BUSPIRONE HYDROCHLORIDE
     Indication: WEIGHT DECREASED
     Dosage: UNK, UNKNOWN
     Route: 065
  4. SIBUTRAMINE [Suspect]
     Active Substance: SIBUTRAMINE
     Indication: WEIGHT DECREASED
     Dosage: UNK, UNKNOWN
     Route: 065

REACTIONS (2)
  - Anticholinergic syndrome [Recovered/Resolved]
  - Off label use [Unknown]
